FAERS Safety Report 5220210-3 (Version None)
Quarter: 2007Q1

REPORT INFORMATION
  Report Type: 
  Country: None (occurrence: None)
  Receive Date: 20061201
  Receipt Date: 20060518
  Transmission Date: 20070707
  Serious: Yes (Other)
  Sender: FDA-Public Use
  Company Number: PHEH2006US06504

PATIENT
  Age: 47 Year
  Sex: Female

DRUGS (1)
  1. LAMISIL [Suspect]
     Indication: NAIL TINEA
     Dosage: 250 MG, QD, ORAL
     Route: 048
     Dates: start: 20060306, end: 20060401

REACTIONS (8)
  - CHROMATURIA [None]
  - DECREASED APPETITE [None]
  - DYSGEUSIA [None]
  - INSOMNIA [None]
  - JAUNDICE [None]
  - LABORATORY TEST ABNORMAL [None]
  - OCULAR ICTERUS [None]
  - PRURITUS [None]
